FAERS Safety Report 14221770 (Version 2)
Quarter: 2017Q4

REPORT INFORMATION
  Report Type: Report from Study
  Country: None (occurrence: BE)
  Receive Date: 20171123
  Receipt Date: 20171127
  Transmission Date: 20180321
  Serious: Yes (Death)
  Sender: FDA-Public Use
  Company Number: BE-ABBVIE-17K-013-2129529-00

PATIENT
  Sex: Female

DRUGS (7)
  1. DUODOPA [Suspect]
     Active Substance: CARBIDOPA\LEVODOPA
     Dosage: MD= 0 ML; CD= 2.6 ML/H DURING 16 HRS; EDA= 1.5 ML??ND= 1.7 ML/H DURING 8 HRS
     Route: 050
     Dates: start: 20151006, end: 20171107
  2. DUODOPA [Suspect]
     Active Substance: CARBIDOPA\LEVODOPA
     Dosage: MD= 0ML; CD=3ML/H DURING 16H; ND=1.7 ML/H DURING 8H; ED=1.5 ML;
     Route: 050
     Dates: start: 20171107, end: 201711
  3. DUODOPA [Suspect]
     Active Substance: CARBIDOPA\LEVODOPA
     Dosage: AM: 3,0ML; 3.4ML/H FOR 16 HRS; ND: 1.7ML/H FOR 8 HRS; ED: 1.7ML
     Route: 050
     Dates: start: 201711
  4. DUODOPA [Suspect]
     Active Substance: CARBIDOPA\LEVODOPA
     Dosage: DOSES CONTINUOUSLY MONITORED AND ADAPTED
     Route: 050
     Dates: start: 20131211, end: 20151006
  5. PROLOPA [Concomitant]
     Active Substance: BENSERAZIDE\LEVODOPA
     Indication: PRODUCT USED FOR UNKNOWN INDICATION
     Dosage: FORM STRENGTH: 100MG/25MG
  6. PROLOPA [Concomitant]
     Active Substance: BENSERAZIDE\LEVODOPA
     Dosage: FORM STRENGTH: 100MG/25MG, 7/DAY AS RESCUE MEDICATION
  7. DUODOPA [Suspect]
     Active Substance: CARBIDOPA\LEVODOPA
     Indication: PARKINSON^S DISEASE
     Dosage: MD= 1 ML; CD= 2.0 ML/H DURING 16 HRS; EDA= 1.5 ML; ND= 1.5 ML/H DURING 8 HRS
     Route: 050
     Dates: start: 20130312, end: 20131211

REACTIONS (7)
  - Incorrect route of drug administration [Unknown]
  - Mental disorder [Unknown]
  - Drug effect incomplete [Unknown]
  - General physical health deterioration [Fatal]
  - Device dislocation [Recovering/Resolving]
  - Muscle rigidity [Unknown]
  - Confusional state [Unknown]
